FAERS Safety Report 25739889 (Version 1)
Quarter: 2025Q3

REPORT INFORMATION
  Report Type: Spontaneous
  Country: US (occurrence: None)
  Receive Date: 20250829
  Receipt Date: 20250829
  Transmission Date: 20251021
  Serious: Yes (Hospitalization)
  Sender: FDA-CTU
  Company Number: None

PATIENT
  Age: 67 Year
  Sex: Female
  Weight: 44.36 kg

DRUGS (4)
  1. FLUOROURACIL [Suspect]
     Active Substance: FLUOROURACIL
     Dates: end: 20250711
  2. IRINOTECAN [Suspect]
     Active Substance: IRINOTECAN
     Dates: end: 20250709
  3. LEUCOVORIN CALCIUM [Suspect]
     Active Substance: LEUCOVORIN CALCIUM
     Dates: end: 20250709
  4. ELOXATIN [Suspect]
     Active Substance: OXALIPLATIN
     Dates: end: 20250709

REACTIONS (13)
  - Platelet count abnormal [None]
  - Dysuria [None]
  - Urine output decreased [None]
  - Back pain [None]
  - Hypoaesthesia [None]
  - Paraesthesia [None]
  - Hypoaesthesia [None]
  - Flank pain [None]
  - Ascites [None]
  - Hepatomegaly [None]
  - Hepatic steatosis [None]
  - Gastrointestinal wall thickening [None]
  - Hiatus hernia [None]

NARRATIVE: CASE EVENT DATE: 20250818
